FAERS Safety Report 11220768 (Version 1)
Quarter: 2015Q2

REPORT INFORMATION
  Report Type: Spontaneous
  Country: US (occurrence: None)
  Receive Date: 20150625
  Receipt Date: 20150625
  Transmission Date: 20150821
  Serious: Yes (Other)
  Sender: FDA-Public Use
  Company Number: None

PATIENT
  Age: 60 Year
  Sex: Female
  Weight: 78.1 kg

DRUGS (1)
  1. ADALIMUMAB [Suspect]
     Active Substance: ADALIMUMAB
     Indication: RHEUMATOID ARTHRITIS
     Dosage: 40 MG?OTHER ?SQ
     Route: 058
     Dates: start: 20071022, end: 20150102

REACTIONS (2)
  - Pulmonary fibrosis [None]
  - Interstitial lung disease [None]

NARRATIVE: CASE EVENT DATE: 20141230
